FAERS Safety Report 8293475-1 (Version None)
Quarter: 2012Q2

REPORT INFORMATION
  Report Type: 
  Country: None (occurrence: None)
  Receive Date: 20120417
  Receipt Date: 20120404
  Transmission Date: 20120825
  Serious: Yes (Other)
  Sender: FDA-Public Use
  Company Number: IT-MYLANLABS-2012S1007468

PATIENT
  Age: 81 Year
  Sex: Male

DRUGS (2)
  1. LEUPROLIDE ACETATE [Concomitant]
     Indication: PROSTATE CANCER
  2. TAMSULOSIN HCL [Suspect]
     Indication: BENIGN PROSTATIC HYPERPLASIA
     Route: 048
     Dates: start: 20120314, end: 20120321

REACTIONS (3)
  - ASTHENIA [None]
  - DERMATITIS [None]
  - DIZZINESS [None]
